FAERS Safety Report 4599699-9 (Version None)
Quarter: 2005Q1

REPORT INFORMATION
  Report Type: 
  Country: None (occurrence: None)
  Receive Date: 20050302
  Receipt Date: 20050217
  Transmission Date: 20050727
  Serious: Yes (Hospitalization, Other)
  Sender: FDA-Public Use
  Company Number: HQWYE289530DEC04

PATIENT
  Age: 80 Year
  Sex: Female

DRUGS (9)
  1. INIPOMP (PANTOPRAZOLE, TABLET, DELAYED RELEASE) [Suspect]
     Dosage: 90 MG 1X PER 1 DAY
     Route: 048
     Dates: start: 20041008, end: 20041109
  2. BISOPROLOL FUMARATE [Suspect]
     Indication: CARDIAC FAILURE
     Dosage: 1.25 MG 1X PER 1 DAY
     Route: 048
     Dates: start: 20041026, end: 20041109
  3. LASILIX (FUROSEMIDE, ) [Suspect]
     Indication: CARDIAC FAILURE
     Dosage: 20 MG 1X PER 1 DAY
     Route: 048
     Dates: start: 20041008, end: 20041109
  4. LASILIX (FUROSEMIDE, ) [Suspect]
     Indication: HYPERTENSION
     Dosage: 20 MG 1X PER 1 DAY
     Route: 048
     Dates: start: 20041008, end: 20041109
  5. PREVISCAN (FLUINDIONE, ) [Suspect]
     Indication: ATRIAL FIBRILLATION
     Dosage: 20 MG, SOME TIME (S) SOME DF
     Route: 048
     Dates: start: 20041008, end: 20041107
  6. PREVISCAN (FLUINDIONE, ) [Suspect]
     Indication: ATRIAL FLUTTER
     Dosage: 20 MG, SOME TIME (S) SOME DF
     Route: 048
     Dates: start: 20041008, end: 20041107
  7. ZESTRIL [Suspect]
     Indication: CARDIAC FAILURE
     Dosage: 5 MG 1X PER 1 DAY
     Route: 048
     Dates: start: 20041008, end: 20041109
  8. ZESTRIL [Suspect]
     Indication: HYPERTENSION
     Dosage: 5 MG 1X PER 1 DAY
     Route: 048
     Dates: start: 20041008, end: 20041109
  9. CORDARONE [Concomitant]
     Indication: CARDIAC FAILURE

REACTIONS (4)
  - INFLAMMATION [None]
  - INTERNATIONAL NORMALISED RATIO INCREASED [None]
  - NEUTROPENIA [None]
  - RENAL FAILURE [None]
